FAERS Safety Report 10501692 (Version 1)
Quarter: 2014Q3

REPORT INFORMATION
  Report Type: Spontaneous
  Country: US (occurrence: None)
  Receive Date: 20140815
  Receipt Date: 20140815
  Transmission Date: 20150326
  Serious: Yes (Other)
  Sender: FDA-Public Use
  Company Number: ADR-2013-01125

PATIENT
  Age: 58 Year
  Sex: Male

DRUGS (4)
  1. BUPIVACAINE [Suspect]
     Active Substance: BUPIVACAINE
  2. BACLOFEN INTRATHECAL 2000MCG/ML [Suspect]
     Active Substance: BACLOFEN
     Indication: MUSCLE SPASTICITY
  3. PRIALT [Suspect]
     Active Substance: ZICONOTIDE ACETATE
  4. DILAUDID [Suspect]
     Active Substance: HYDROMORPHONE HYDROCHLORIDE

REACTIONS (2)
  - Constipation [None]
  - Urinary retention [None]

NARRATIVE: CASE EVENT DATE: 20130622
